FAERS Safety Report 10008535 (Version 2)
Quarter: 2014Q1

REPORT INFORMATION
  Report Type: Spontaneous
  Country: US (occurrence: US)
  Receive Date: 20140312
  Receipt Date: 20140312
  Transmission Date: 20141002
  Serious: No
  Sender: FDA-Public Use
  Company Number: US-INCYTE CORPORATION-2012IN000029

PATIENT
  Age: 79 Year
  Sex: Female

DRUGS (7)
  1. JAKAFI [Suspect]
     Indication: MYELOFIBROSIS
     Dosage: 20 MG, BID
     Route: 048
     Dates: start: 20111213
  2. MULTIVITAMINS, OTHER COMBINATIONS [Concomitant]
  3. VITAMIN B6 [Concomitant]
  4. VITAMIN B12 NOS [Concomitant]
  5. FOLIC ACID [Concomitant]
  6. FISH OIL [Concomitant]
  7. ASPIRIN [Concomitant]

REACTIONS (3)
  - Back pain [Recovered/Resolved]
  - Platelet count decreased [Recovered/Resolved]
  - Cystitis [Unknown]
